FAERS Safety Report 7601967-0 (Version None)
Quarter: 2011Q3

REPORT INFORMATION
  Report Type: 
  Country: None (occurrence: None)
  Receive Date: 20110711
  Receipt Date: 20110627
  Transmission Date: 20111222
  Serious: Yes (Hospitalization, Other)
  Sender: FDA-Public Use
  Company Number: US-B.I. PHARMACEUTICALS,INC./RIDGEFIELD-2011-DE-03791GD

PATIENT
  Age: 44 Year
  Sex: Male

DRUGS (6)
  1. AMANTADINE HCL [Suspect]
     Indication: PARKINSON'S DISEASE
     Dosage: 300 MG
  2. LEVODOPA [Suspect]
     Dosage: UP TO 1000 MG DAILY
  3. PRAMIPEXOLE DIHYDROCHLORIDE [Suspect]
     Indication: PARKINSON'S DISEASE
     Dosage: 4.5 MG
  4. PRAMIPEXOLE DIHYDROCHLORIDE [Suspect]
     Dosage: 4 MG
  5. SELEGILINE [Suspect]
     Indication: PARKINSON'S DISEASE
     Dosage: 2.5 MG
  6. LEVODOPA [Suspect]
     Indication: PARKINSON'S DISEASE
     Dosage: 600 MG

REACTIONS (6)
  - DISTURBANCE IN SOCIAL BEHAVIOUR [None]
  - MARITAL PROBLEM [None]
  - DYSKINESIA [None]
  - PATHOLOGICAL GAMBLING [None]
  - DOPAMINE DYSREGULATION SYNDROME [None]
  - IMPULSE-CONTROL DISORDER [None]
